FAERS Safety Report 8926972 (Version 9)
Quarter: 2013Q4

REPORT INFORMATION
  Report Type: Report from Study
  Country: US (occurrence: US)
  Receive Date: 20121127
  Receipt Date: 20131209
  Transmission Date: 20140711
  Serious: Yes (Hospitalization)
  Sender: FDA-Public Use
  Company Number: US-CELGENEUS-163-21880-12112487

PATIENT
  Age: 79 Year
  Sex: Female
  Weight: 91.5 kg

DRUGS (52)
  1. REVLIMID [Suspect]
     Indication: PLASMA CELL MYELOMA
     Route: 048
     Dates: start: 20121011
  2. REVLIMID [Suspect]
     Route: 048
     Dates: start: 20130729
  3. REVLIMID [Suspect]
     Route: 048
     Dates: start: 20130801
  4. ELOTUZUMAB [Suspect]
     Indication: PLASMA CELL MYELOMA
     Route: 041
     Dates: start: 20121011
  5. ELOTUZUMAB [Suspect]
     Route: 041
     Dates: start: 20130718, end: 20130730
  6. ELOTUZUMAB [Suspect]
     Route: 041
     Dates: start: 20130801
  7. LENADEX [Suspect]
     Indication: PLASMA CELL MYELOMA
     Route: 048
     Dates: start: 20121011
  8. LENADEX [Suspect]
     Route: 048
     Dates: start: 20121119
  9. LENADEX [Suspect]
     Route: 048
     Dates: start: 20130729
  10. LENADEX [Suspect]
     Route: 048
     Dates: start: 20130801
  11. DEXAMETHASONE [Suspect]
     Indication: PLASMA CELL MYELOMA
     Route: 041
     Dates: start: 20121011
  12. DEXAMETHASONE [Suspect]
     Route: 041
     Dates: start: 20130801
  13. NORMAL SALINE [Concomitant]
     Indication: ADVERSE EVENT
     Route: 065
     Dates: start: 20121101, end: 20121101
  14. IMODIUM [Concomitant]
     Indication: ADVERSE EVENT
     Route: 065
     Dates: start: 20121023
  15. ALEVE [Concomitant]
     Indication: ADVERSE EVENT
     Route: 065
     Dates: start: 20121012, end: 20121012
  16. COMPAZINE [Concomitant]
     Indication: PRODUCT USED FOR UNKNOWN INDICATION
     Route: 065
     Dates: start: 20121011
  17. CENTRUM SILVER [Concomitant]
     Indication: PRODUCT USED FOR UNKNOWN INDICATION
     Route: 065
     Dates: start: 20121009
  18. CHOLECALCIFEROL [Concomitant]
     Indication: PRODUCT USED FOR UNKNOWN INDICATION
     Route: 065
     Dates: start: 20121009
  19. VITAMIN E [Concomitant]
     Indication: PRODUCT USED FOR UNKNOWN INDICATION
     Route: 065
     Dates: start: 20121009
  20. VITAMIN B-12 [Concomitant]
     Indication: PRODUCT USED FOR UNKNOWN INDICATION
     Route: 065
     Dates: start: 20121009
  21. ASPIRIN [Concomitant]
     Indication: PRODUCT USED FOR UNKNOWN INDICATION
     Route: 065
     Dates: start: 20121010
  22. ACYCLOVIR [Concomitant]
     Indication: PRODUCT USED FOR UNKNOWN INDICATION
     Route: 065
     Dates: start: 20121010
  23. METFORMIN [Concomitant]
     Indication: PRODUCT USED FOR UNKNOWN INDICATION
     Route: 065
     Dates: start: 19900101
  24. LISINOPRIL [Concomitant]
     Indication: PRODUCT USED FOR UNKNOWN INDICATION
     Route: 065
     Dates: start: 20110525
  25. LOVASTATIN [Concomitant]
     Indication: PRODUCT USED FOR UNKNOWN INDICATION
     Route: 065
     Dates: start: 19900101
  26. ATENOLOL [Concomitant]
     Indication: PRODUCT USED FOR UNKNOWN INDICATION
     Route: 065
     Dates: start: 20110525
  27. HEPARIN [Concomitant]
     Indication: PRODUCT USED FOR UNKNOWN INDICATION
     Route: 065
     Dates: start: 20121114, end: 20121114
  28. TYLENOL [Concomitant]
     Indication: ADVERSE EVENT
     Route: 065
     Dates: start: 20121114, end: 20121114
  29. TYLENOL [Concomitant]
     Indication: PRODUCT USED FOR UNKNOWN INDICATION
     Route: 065
     Dates: start: 20130505, end: 20130505
  30. TYLENOL [Concomitant]
     Route: 065
     Dates: start: 20130616
  31. XANAX [Concomitant]
     Indication: ADVERSE EVENT
     Route: 065
     Dates: start: 20121114, end: 20121114
  32. ALUMINUM MAGNESIUM COMPLEX [Concomitant]
     Indication: PRODUCT USED FOR UNKNOWN INDICATION
     Route: 065
     Dates: start: 20121114, end: 20121114
  33. BACTRIM [Concomitant]
     Indication: PRODUCT USED FOR UNKNOWN INDICATION
     Route: 065
     Dates: start: 20121116
  34. INSULIN [Concomitant]
     Indication: ADVERSE EVENT
     Route: 065
     Dates: start: 20121121, end: 20121121
  35. AUGMENTIN [Concomitant]
     Indication: ADVERSE EVENT
     Route: 065
     Dates: start: 20121206, end: 20121221
  36. AUGMENTIN [Concomitant]
     Route: 065
     Dates: start: 20130103
  37. ZOMETA [Concomitant]
     Indication: PRODUCT USED FOR UNKNOWN INDICATION
     Route: 065
     Dates: start: 20121220
  38. NORCO [Concomitant]
     Indication: ADVERSE EVENT
     Route: 065
     Dates: start: 20130102
  39. GABAPENTIN [Concomitant]
     Indication: ADVERSE EVENT
     Route: 065
     Dates: start: 20121221
  40. ZITHROMAX [Concomitant]
     Indication: ADVERSE EVENT
     Route: 065
     Dates: start: 20130103, end: 20130109
  41. POTASSIUM [Concomitant]
     Indication: ADVERSE EVENT
     Route: 065
     Dates: start: 20130117, end: 20130117
  42. POTASSIUM [Concomitant]
     Route: 065
     Dates: start: 20131024, end: 20131024
  43. POTASSIUM [Concomitant]
     Route: 065
     Dates: start: 20131107
  44. TESSALON PERLES [Concomitant]
     Indication: ADVERSE EVENT
     Route: 065
     Dates: start: 20130117, end: 20130127
  45. ALBUTEROL [Concomitant]
     Indication: ADVERSE EVENT
     Route: 065
     Dates: start: 20130117
  46. EMLA [Concomitant]
     Indication: ADVERSE EVENT
     Route: 065
     Dates: start: 20130214
  47. ALTEPLASE [Concomitant]
     Indication: ADVERSE EVENT
     Route: 065
     Dates: start: 20130425, end: 20130425
  48. ALTEPLASE [Concomitant]
     Route: 065
     Dates: start: 20130523, end: 20130523
  49. ALTEPLASE [Concomitant]
     Route: 065
     Dates: start: 20130606, end: 20130606
  50. OXYCODONE [Concomitant]
     Indication: PRODUCT USED FOR UNKNOWN INDICATION
     Route: 065
     Dates: start: 20121220
  51. OXYCODONE [Concomitant]
     Route: 065
     Dates: start: 20130228
  52. LEVOFLOXACIN [Concomitant]
     Indication: ADVERSE EVENT
     Route: 065
     Dates: start: 20130729, end: 20130731

REACTIONS (2)
  - Visual impairment [Recovered/Resolved]
  - Syncope [Recovered/Resolved]
